FAERS Safety Report 18831543 (Version 1)
Quarter: 2021Q1

REPORT INFORMATION
  Report Type: Spontaneous
  Country: DE (occurrence: DE)
  Receive Date: 20210203
  Receipt Date: 20210203
  Transmission Date: 20210419
  Serious: Yes (Death, Other)
  Sender: FDA-Public Use
  Company Number: DE-AUROBINDO-AUR-APL-2021-004288

PATIENT
  Sex: Female

DRUGS (2)
  1. BRIVUDINE [Suspect]
     Active Substance: BRIVUDINE
     Indication: OPHTHALMIC HERPES ZOSTER
     Dosage: UNK
     Route: 065
  2. ACICLOVIR [Suspect]
     Active Substance: ACYCLOVIR
     Indication: OPHTHALMIC HERPES ZOSTER
     Dosage: UNK
     Route: 065

REACTIONS (4)
  - Death [Fatal]
  - Renal disorder [Unknown]
  - Drug ineffective [Unknown]
  - Adverse event [Unknown]
